FAERS Safety Report 7779798-0 (Version None)
Quarter: 2011Q3

REPORT INFORMATION
  Report Type: 
  Country: None (occurrence: None)
  Receive Date: 20110927
  Receipt Date: 20110913
  Transmission Date: 20111222
  Serious: Yes (Hospitalization)
  Sender: FDA-Public Use
  Company Number: JP-PFIZER INC-2011211127

PATIENT
  Age: 46 Year
  Sex: Male
  Weight: 56.9 kg

DRUGS (5)
  1. FAMOTIDINE [Concomitant]
     Indication: GASTRITIS
     Dosage: UNK
     Dates: start: 20070803
  2. ALENDRONATE SODIUM [Concomitant]
     Indication: OSTEOPOROSIS
     Dosage: UNK
     Dates: start: 20071002
  3. PREDNISOLONE [Concomitant]
     Indication: EOSINOPHILIC PNEUMONIA
     Dosage: UNK
     Route: 048
     Dates: start: 20070710
  4. FLUTICASONE PROPIONATE [Concomitant]
     Indication: EOSINOPHILIC PNEUMONIA
     Dosage: UNK
     Dates: start: 20040527
  5. LIPITOR [Suspect]
     Indication: DYSLIPIDAEMIA
     Dosage: 10 MG, DAILY
     Route: 048
     Dates: start: 20110531, end: 20110815

REACTIONS (1)
  - GRANULOCYTOPENIA [None]
